FAERS Safety Report 14790490 (Version 1)
Quarter: 2018Q2

REPORT INFORMATION
  Report Type: Report from Study
  Country: GB (occurrence: GB)
  Receive Date: 20180423
  Receipt Date: 20180423
  Transmission Date: 20180711
  Serious: Yes (Hospitalization)
  Sender: FDA-Public Use
  Company Number: GB-JNJFOC-20180417308

PATIENT
  Sex: Female

DRUGS (3)
  1. STELARA [Suspect]
     Active Substance: USTEKINUMAB
     Indication: PRODUCT USED FOR UNKNOWN INDICATION
     Route: 058
     Dates: start: 2014
  2. CODEINE [Concomitant]
     Active Substance: CODEINE
     Route: 065
  3. PARACETAMOL [Concomitant]
     Active Substance: ACETAMINOPHEN
     Route: 065

REACTIONS (7)
  - Memory impairment [Unknown]
  - Muscle spasms [Unknown]
  - Abdominal pain upper [Unknown]
  - Joint stiffness [Unknown]
  - Hospitalisation [Unknown]
  - Headache [Unknown]
  - Ear infection [Unknown]
